FAERS Safety Report 6586020-X (Version None)
Quarter: 2010Q1

REPORT INFORMATION
  Report Type: 
  Country: None (occurrence: None)
  Receive Date: 20100216
  Receipt Date: 20100216
  Transmission Date: 20100710
  Serious: Yes (Hospitalization)
  Sender: FDA-Public Use
  Company Number: None

PATIENT
  Sex: Female
  Weight: 59.5 kg

DRUGS (3)
  1. OXALIPLATIN [Suspect]
     Indication: GASTROOESOPHAGEAL CANCER
     Dosage: 130 MG/M2 D1 IV
     Route: 042
     Dates: start: 20091221
  2. CETUXIMAB [Suspect]
     Indication: GASTROOESOPHAGEAL CANCER
     Dosage: 250 MG/M2 D1, 8, 15 IV
     Route: 042
     Dates: start: 20091221
  3. XELODA [Suspect]
     Indication: GASTROOESOPHAGEAL CANCER
     Dosage: 850MG/M2 D1-14 BID P.O.
     Route: 048
     Dates: start: 20091221

REACTIONS (14)
  - ASTHENIA [None]
  - BLOOD PRESSURE DECREASED [None]
  - DEHYDRATION [None]
  - DRY SKIN [None]
  - FEELING ABNORMAL [None]
  - HAEMATEMESIS [None]
  - HEART RATE INCREASED [None]
  - HYPOKALAEMIA [None]
  - NAUSEA [None]
  - PYREXIA [None]
  - SKIN WARM [None]
  - TUMOUR HAEMORRHAGE [None]
  - UPPER GASTROINTESTINAL HAEMORRHAGE [None]
  - VOMITING [None]
